FAERS Safety Report 6046559-2 (Version None)
Quarter: 2009Q1

REPORT INFORMATION
  Report Type: 
  Country: None (occurrence: None)
  Receive Date: 20090122
  Receipt Date: 20090109
  Transmission Date: 20090719
  Serious: Yes (Hospitalization)
  Sender: FDA-Public Use
  Company Number: PHHY2009JP01295

PATIENT
  Sex: Female
  Weight: 53 kg

DRUGS (4)
  1. DIOVAN [Suspect]
     Indication: HYPERTENSION
     Dosage: 80 MG, QD
     Route: 048
     Dates: start: 20071109, end: 20080115
  2. LOXOPROFEN SODIUM [Concomitant]
     Dosage: 180 MG
     Route: 048
     Dates: start: 20080105, end: 20080115
  3. TIZANIDINE HYDROCHLORIDE [Concomitant]
     Dosage: 3 MG
     Route: 048
     Dates: start: 20080105, end: 20080115
  4. ALUSA [Concomitant]
     Dosage: 300 MG
     Route: 048
     Dates: start: 20080105, end: 20080115

REACTIONS (1)
  - PNEUMONIA [None]
